FAERS Safety Report 24079885 (Version 1)
Quarter: 2024Q3

REPORT INFORMATION
  Report Type: Spontaneous
  Country: US (occurrence: US)
  Receive Date: 20240711
  Receipt Date: 20240711
  Transmission Date: 20241017
  Serious: No
  Sender: PFIZER
  Company Number: US-PFIZER INC-202400210082

PATIENT
  Age: 45 Year
  Sex: Female
  Weight: 63.5 kg

DRUGS (2)
  1. PAXLOVID [Suspect]
     Active Substance: NIRMATRELVIR\RITONAVIR
     Indication: COVID-19 treatment
  2. COPAXONE [Concomitant]
     Active Substance: GLATIRAMER ACETATE
     Indication: Multiple sclerosis
     Dosage: UNK

REACTIONS (2)
  - COVID-19 [Unknown]
  - Disease recurrence [Unknown]

NARRATIVE: CASE EVENT DATE: 20240709
